FAERS Safety Report 24884511 (Version 1)
Quarter: 2025Q1

REPORT INFORMATION
  Report Type: Spontaneous
  Country: FR (occurrence: FR)
  Receive Date: 20250124
  Receipt Date: 20250124
  Transmission Date: 20250409
  Serious: Yes (Hospitalization, Other)
  Sender: TAKEDA
  Company Number: None

PATIENT
  Age: 53 Year
  Sex: Male
  Weight: 65 kg

DRUGS (34)
  1. LANSOPRAZOLE [Suspect]
     Active Substance: LANSOPRAZOLE
     Indication: Prophylaxis
     Dosage: 30 MILLIGRAM, QD
  2. RITUXIMAB [Suspect]
     Active Substance: RITUXIMAB
     Indication: Encephalitis autoimmune
  3. PREDNISONE [Suspect]
     Active Substance: PREDNISONE
     Indication: Encephalitis autoimmune
  4. RISPERIDONE [Suspect]
     Active Substance: RISPERIDONE
     Indication: Aggression
     Dosage: 1 MILLIGRAM, BID
  5. METHYLPREDNISOLONE [Suspect]
     Active Substance: METHYLPREDNISOLONE
     Indication: Encephalitis autoimmune
  6. LEVOFLOXACIN [Suspect]
     Active Substance: LEVOFLOXACIN
     Indication: Product used for unknown indication
     Dosage: 500 MILLIGRAM, BID
     Dates: end: 20241002
  7. CILASTATIN SODIUM\IMIPENEM [Suspect]
     Active Substance: CILASTATIN SODIUM\IMIPENEM
     Indication: Pneumonia
  8. SULFAMETHOXAZOLE\TRIMETHOPRIM [Suspect]
     Active Substance: SULFAMETHOXAZOLE\TRIMETHOPRIM
     Indication: Pneumonia
  9. SULFAMETHOXAZOLE\TRIMETHOPRIM [Suspect]
     Active Substance: SULFAMETHOXAZOLE\TRIMETHOPRIM
     Dosage: 400/50 MILLIGRAM, BID
     Dates: start: 20240925, end: 20240929
  10. ZERBAXA [Suspect]
     Active Substance: CEFTOLOZANE SULFATE\TAZOBACTAM SODIUM
     Indication: Product used for unknown indication
     Dosage: UNK UNK, Q12H
     Dates: end: 20240924
  11. PROPOFOL [Concomitant]
     Active Substance: PROPOFOL
     Indication: Sedation
     Dates: start: 20240910, end: 20240930
  12. SUFENTANIL [Concomitant]
     Active Substance: SUFENTANIL
     Indication: Sedation
     Dates: start: 20240913, end: 20240930
  13. ALBUTEROL [Concomitant]
     Active Substance: ALBUTEROL
     Indication: Asthma
  14. LEVETIRACETAM [Concomitant]
     Active Substance: LEVETIRACETAM
     Indication: Seizure
  15. NICARDIPINE [Concomitant]
     Active Substance: NICARDIPINE
     Indication: Product used for unknown indication
     Dosage: 50 MILLIGRAM, Q12H
  16. HALOPERIDOL [Concomitant]
     Active Substance: HALOPERIDOL
     Indication: Product used for unknown indication
  17. OXAZEPAM [Concomitant]
     Active Substance: OXAZEPAM
     Indication: Product used for unknown indication
     Dosage: 25 MILLIGRAM, QD
     Dates: start: 20240828
  18. OXAZEPAM [Concomitant]
     Active Substance: OXAZEPAM
     Dosage: 75 MILLIGRAM, QD
     Dates: start: 20240828
  19. DIAZEPAM [Concomitant]
     Active Substance: DIAZEPAM
     Indication: Product used for unknown indication
  20. DIAZEPAM [Concomitant]
     Active Substance: DIAZEPAM
  21. LOVENOX [Concomitant]
     Active Substance: ENOXAPARIN SODIUM
     Indication: Product used for unknown indication
     Dosage: UNK UNK, QD
     Dates: start: 20240827
  22. LOVENOX [Concomitant]
     Active Substance: ENOXAPARIN SODIUM
     Dosage: UNK UNK, BID
     Dates: start: 20240921
  23. LOVENOX [Concomitant]
     Active Substance: ENOXAPARIN SODIUM
     Dosage: UNK UNK, BID
     Dates: start: 20240926
  24. LOXAPINE [Concomitant]
     Active Substance: LOXAPINE
     Indication: Product used for unknown indication
     Dates: start: 20240928, end: 20240929
  25. ZOPICLONE [Concomitant]
     Active Substance: ZOPICLONE
     Indication: Product used for unknown indication
  26. ZOPICLONE [Concomitant]
     Active Substance: ZOPICLONE
  27. ZOPICLONE [Concomitant]
     Active Substance: ZOPICLONE
  28. ZOPICLONE [Concomitant]
     Active Substance: ZOPICLONE
  29. ZOPICLONE [Concomitant]
     Active Substance: ZOPICLONE
  30. OMNIPAQUE [Concomitant]
     Active Substance: IOHEXOL
     Indication: Product used for unknown indication
  31. POLYETHYLENE GLYCOLS [Concomitant]
     Active Substance: POLYETHYLENE GLYCOLS
     Indication: Product used for unknown indication
  32. POLYETHYLENE GLYCOLS [Concomitant]
     Active Substance: POLYETHYLENE GLYCOLS
     Dates: start: 20240926, end: 20240928
  33. POLYETHYLENE GLYCOLS [Concomitant]
     Active Substance: POLYETHYLENE GLYCOLS
  34. PYRIDOXINE [Concomitant]
     Active Substance: PYRIDOXINE
     Indication: Product used for unknown indication
     Dosage: 250 MILLIGRAM, Q8HR

REACTIONS (7)
  - Acute respiratory failure [Unknown]
  - Lung disorder [Unknown]
  - Pseudomonas infection [Unknown]
  - Pneumonia klebsiella [Unknown]
  - Stenotrophomonas infection [Unknown]
  - Cardiac ventricular thrombosis [Unknown]
  - Rash maculo-papular [Not Recovered/Not Resolved]

NARRATIVE: CASE EVENT DATE: 20240827
